FAERS Safety Report 10285187 (Version 1)
Quarter: 2014Q3

REPORT INFORMATION
  Report Type: Spontaneous
  Country: GB (occurrence: GB)
  Receive Date: 20140708
  Receipt Date: 20140708
  Transmission Date: 20150326
  Serious: Yes (Disabling, Other)
  Sender: FDA-Public Use
  Company Number: PHHY2014GB081284

PATIENT
  Age: 55 Year
  Sex: Male
  Weight: 72 kg

DRUGS (6)
  1. VENLAFAXINE HYDROCHLORIDE. [Concomitant]
     Active Substance: VENLAFAXINE HYDROCHLORIDE
  2. DHC-CONTINUS [Suspect]
     Active Substance: DIHYDROCODEINE BITARTRATE
     Indication: ARTHRALGIA
     Route: 048
     Dates: start: 20031218
  3. TRAMADOL [Suspect]
     Active Substance: TRAMADOL
     Indication: ARTHRALGIA
     Route: 048
     Dates: start: 20031218
  4. COCODAMOL [Suspect]
     Active Substance: ACETAMINOPHEN\CODEINE PHOSPHATE
     Indication: ARTHRALGIA
     Route: 048
     Dates: start: 20031218
  5. IRON [Concomitant]
     Active Substance: IRON
  6. LANSOPRAZOLE. [Concomitant]
     Active Substance: LANSOPRAZOLE

REACTIONS (6)
  - Dizziness [Not Recovered/Not Resolved]
  - Disturbance in attention [Not Recovered/Not Resolved]
  - Confusional state [Not Recovered/Not Resolved]
  - Amnesia [Not Recovered/Not Resolved]
  - Memory impairment [None]
  - Anxiety [None]

NARRATIVE: CASE EVENT DATE: 20050118
